FAERS Safety Report 14187237 (Version 2)
Quarter: 2018Q1

REPORT INFORMATION
  Report Type: Report from Study
  Country: CN (occurrence: CN)
  Receive Date: 20171114
  Receipt Date: 20180108
  Transmission Date: 20180508
  Serious: Yes (Other)
  Sender: FDA-Public Use
  Company Number: CN-BAYER-2015-295018

PATIENT
  Age: 42 Year
  Sex: Male

DRUGS (1)
  1. NEXAVAR [Suspect]
     Active Substance: SORAFENIB
     Indication: HEPATOCELLULAR CARCINOMA
     Dosage: 400 MG, BID
     Route: 048
     Dates: start: 20150204

REACTIONS (7)
  - Skin exfoliation [None]
  - Metastases to lung [None]
  - Metastases to lymph nodes [None]
  - Diarrhoea [None]
  - Alopecia [None]
  - Blister [None]
  - Lymphadenopathy [None]
